FAERS Safety Report 6778896-8 (Version None)
Quarter: 2010Q2

REPORT INFORMATION
  Report Type: 
  Country: None (occurrence: None)
  Receive Date: 20100618
  Receipt Date: 20100610
  Transmission Date: 20101027
  Serious: No
  Sender: FDA-Public Use
  Company Number: EC-JNJFOC-20100500090

PATIENT
  Age: 38 Year
  Sex: Female

DRUGS (2)
  1. ZALDIAR [Suspect]
     Indication: TOOTHACHE
     Dosage: ONCE
     Route: 048
  2. ARCOXIA [Concomitant]
     Dosage: ONCE A DAY FOR THREE DAYS

REACTIONS (8)
  - DEHYDRATION [None]
  - DIZZINESS [None]
  - HYPERHIDROSIS [None]
  - HYPOTENSION [None]
  - PERIPHERAL COLDNESS [None]
  - SYNCOPE [None]
  - VISION BLURRED [None]
  - VOMITING [None]
